FAERS Safety Report 7222510-4 (Version None)
Quarter: 2011Q1

REPORT INFORMATION
  Report Type: 
  Country: None (occurrence: None)
  Receive Date: 20110106
  Receipt Date: 20110106
  Transmission Date: 20110831
  Serious: Yes (Other)
  Sender: FDA-Public Use
  Company Number: None

PATIENT
  Age: 58 Year
  Sex: Female
  Weight: 65.7716 kg

DRUGS (1)
  1. TAMOXIFEN CITRATE [Suspect]
     Indication: BREAST CANCER
     Dosage: 1 PILL ONCE A DAY PO
     Route: 048
     Dates: start: 20070212, end: 20100212

REACTIONS (7)
  - PALPITATIONS [None]
  - MEMORY IMPAIRMENT [None]
  - COGNITIVE DISORDER [None]
  - MUSCLE STRAIN [None]
  - VISUAL IMPAIRMENT [None]
  - ASTHENOPIA [None]
  - DIPLOPIA [None]
